FAERS Safety Report 4309407-4 (Version None)
Quarter: 2004Q1

REPORT INFORMATION
  Report Type: 
  Country: None (occurrence: None)
  Receive Date: 20040301
  Receipt Date: 20040216
  Transmission Date: 20041129
  Serious: Yes (Hospitalization)
  Sender: FDA-Public Use
  Company Number: 2004AP00878

PATIENT
  Age: 51 Year
  Sex: Male

DRUGS (7)
  1. IRESSA [Suspect]
     Indication: LUNG ADENOCARCINOMA
     Dosage: 250 MG DAILY PO
     Route: 048
     Dates: start: 20030205, end: 20030425
  2. IRESSA [Suspect]
     Indication: NON-SMALL CELL LUNG CANCER METASTATIC
     Dosage: 250 MG DAILY PO
     Route: 048
     Dates: start: 20030205, end: 20030425
  3. FRUSAMIL [Concomitant]
  4. RADIOTHERAPY [Concomitant]
  5. GEMCITABINE [Concomitant]
  6. DOCETAXEL [Concomitant]
  7. VINORELBINE TARTRATE [Concomitant]

REACTIONS (6)
  - GASTROINTESTINAL DISORDER [None]
  - MALIGNANT NEOPLASM PROGRESSION [None]
  - METASTASIS [None]
  - NON-SMALL CELL LUNG CANCER [None]
  - PLEURAL EFFUSION [None]
  - RESPIRATORY FAILURE [None]
